FAERS Safety Report 19661247 (Version 1)
Quarter: 2021Q3

REPORT INFORMATION
  Report Type: Spontaneous
  Country: JP (occurrence: JP)
  Receive Date: 20210805
  Receipt Date: 20210805
  Transmission Date: 20211014
  Serious: Yes (Other)
  Sender: FDA-Public Use
  Company Number: JP-PFIZER INC-202100958052

PATIENT
  Age: 55 Year
  Sex: Male

DRUGS (5)
  1. PYDOXAL [Concomitant]
     Active Substance: PYRIDOXAL
     Dosage: UNK
  2. CELECOXIB 100MG PFIZER [Suspect]
     Active Substance: CELECOXIB
     Indication: COMPRESSION FRACTURE
     Dosage: 100 MG, 2X/DAY
     Route: 048
     Dates: start: 20210716, end: 20210716
  3. MENATETRENONE [Concomitant]
     Active Substance: MENATETRENONE
     Dosage: UNK
  4. REBAMIPIDE [Suspect]
     Active Substance: REBAMIPIDE
     Dosage: 100 MG, 2X/DAY
     Route: 048
     Dates: start: 20210716, end: 20210716
  5. CELECOXIB 100MG PFIZER [Suspect]
     Active Substance: CELECOXIB
     Indication: BACK PAIN

REACTIONS (6)
  - Dizziness [Unknown]
  - Mental impairment [Not Recovered/Not Resolved]
  - Disturbance in attention [Not Recovered/Not Resolved]
  - Restlessness [Not Recovered/Not Resolved]
  - Diplopia [Unknown]
  - Asthenia [Not Recovered/Not Resolved]

NARRATIVE: CASE EVENT DATE: 20210717
